FAERS Safety Report 23110020 (Version 1)
Quarter: 2023Q4

REPORT INFORMATION
  Report Type: Spontaneous
  Country: US (occurrence: None)
  Receive Date: 20231024
  Receipt Date: 20231024
  Transmission Date: 20240109
  Serious: Yes (Life-Threatening, Hospitalization)
  Sender: FDA-Public Use
  Company Number: None

PATIENT
  Age: 76 Year
  Sex: Male
  Weight: 68 kg

DRUGS (1)
  1. VICTOZA [Suspect]
     Active Substance: LIRAGLUTIDE
     Dosage: FREQUENCY : DAILY;?STRENGTH: 6MG/3ML
     Route: 058
     Dates: start: 20210526, end: 20211006

REACTIONS (3)
  - Gastrointestinal haemorrhage [None]
  - Jaundice [None]
  - Pancreatic carcinoma [None]

NARRATIVE: CASE EVENT DATE: 20211014
